FAERS Safety Report 8200805-5 (Version None)
Quarter: 2012Q1

REPORT INFORMATION
  Report Type: 
  Country: None (occurrence: None)
  Receive Date: 20120222
  Receipt Date: 20120213
  Transmission Date: 20120608
  Serious: Yes (Hospitalization)
  Sender: FDA-Public Use
  Company Number: 2012031212

PATIENT
  Age: 59 Year
  Sex: Female

DRUGS (18)
  1. FLUOXETINE [Concomitant]
  2. RAMIPRIL [Concomitant]
  3. LEVOTHYROXINE SODIUM [Concomitant]
  4. VIVAGLOBIN [Suspect]
     Indication: IMMUNODEFICIENCY COMMON VARIABLE
     Dosage: 10 ML, 1 VIAL PER DAY EVERYDAY/2ND VIAL ON SUNDAYS (8 VIALS PER WEEK)
     Route: 058
     Dates: start: 20101029, end: 20120209
  5. ALBUTEROL SULFATE [Concomitant]
  6. FUROSEMIDE (FUROSEMIDE) [Concomitant]
  7. OMEGA-3 /01168901/ (OMEGA-3 TRIGLYCERIDES) [Concomitant]
  8. EZETIMIBE [Concomitant]
  9. TYLENOL WITH CODEINE (PANADEINE CO) [Concomitant]
  10. ATORVASTATIN [Concomitant]
  11. GLICLAZIDE (GLICLAZIDE) [Concomitant]
  12. LORAZEPAM [Concomitant]
  13. ASPIRIN [Concomitant]
  14. DAILY MULTIVITAMIN (DAILY MULTIVITAMIN) [Concomitant]
  15. SYMBICORT [Concomitant]
  16. BERES C-VITAMIN (ASCORBIC ACID) [Concomitant]
  17. CALCIUM WITH VITAMIN D (CALCIUM WITH VITAMIN D) [Concomitant]
  18. FERROUS FUMARATE [Concomitant]

REACTIONS (4)
  - INFUSION SITE SWELLING [None]
  - HAEMATOMA INFECTION [None]
  - INFUSION SITE RASH [None]
  - STAPHYLOCOCCAL INFECTION [None]
